FAERS Safety Report 15523752 (Version 1)
Quarter: 2018Q4

REPORT INFORMATION
  Report Type: Spontaneous
  Country: US (occurrence: US)
  Receive Date: 20181015
  Receipt Date: 20181015
  Transmission Date: 20190205
  Serious: Yes (Other)
  Sender: FDA-Public Use
  Company Number: None

PATIENT
  Age: 10 Year
  Sex: Male
  Weight: 32.66 kg

DRUGS (3)
  1. PROZAC [Concomitant]
     Active Substance: FLUOXETINE HYDROCHLORIDE
  2. DEXMETHYLPHENIDATE XR 10MG [Suspect]
     Active Substance: DEXMETHYLPHENIDATE HYDROCHLORIDE
     Indication: AUTISM SPECTRUM DISORDER
     Dosage: 10MG QAM PO
     Route: 048
     Dates: start: 20150320, end: 20150520
  3. DEXMETHYLPHENIDATE XR 10MG [Suspect]
     Active Substance: DEXMETHYLPHENIDATE HYDROCHLORIDE
     Indication: ATTENTION DEFICIT/HYPERACTIVITY DISORDER
     Dosage: 10MG QAM PO
     Route: 048
     Dates: start: 20150320, end: 20150520

REACTIONS (5)
  - Irritability [None]
  - Drug ineffective [None]
  - Depressed mood [None]
  - Psychomotor hyperactivity [None]
  - Aggression [None]

NARRATIVE: CASE EVENT DATE: 20150410
